FAERS Safety Report 22591131 (Version 2)
Quarter: 2023Q4

REPORT INFORMATION
  Report Type: Spontaneous
  Country: JP (occurrence: JP)
  Receive Date: 20230612
  Receipt Date: 20231026
  Transmission Date: 20240110
  Serious: Yes (Death, Hospitalization, Other)
  Sender: FDA-Public Use
  Company Number: JP-GSKJP-JP2023JPN079404AA

PATIENT

DRUGS (7)
  1. FLOLAN [Suspect]
     Active Substance: EPOPROSTENOL SODIUM
     Indication: Pulmonary arterial hypertension
     Dosage: UNK UNK, CO
     Route: 042
     Dates: start: 1999
  2. FLOLAN [Suspect]
     Active Substance: EPOPROSTENOL SODIUM
     Dosage: 15 NG/KG/MINUTE, CO
     Route: 042
     Dates: start: 2002
  3. FLOLAN [Suspect]
     Active Substance: EPOPROSTENOL SODIUM
     Dosage: 32.5 NG/KG/MINUTE, CO
     Route: 042
     Dates: start: 2010
  4. FLOLAN [Suspect]
     Active Substance: EPOPROSTENOL SODIUM
     Dosage: UNK UNK, CO
     Route: 042
  5. FLOLAN [Suspect]
     Active Substance: EPOPROSTENOL SODIUM
     Dosage: 60-70 NG/KG/MINUTE, CO
     Route: 042
     Dates: start: 2015
  6. FLOLAN [Suspect]
     Active Substance: EPOPROSTENOL SODIUM
     Dosage: UNK UNK, CO
     Route: 042
  7. FLOLAN [Suspect]
     Active Substance: EPOPROSTENOL SODIUM
     Dosage: 62.8 NG/KG/MINUTE, CO
     Route: 042
     Dates: start: 2015

REACTIONS (14)
  - Goitre [Not Recovered/Not Resolved]
  - Tracheal stenosis [Not Recovered/Not Resolved]
  - Hyperthyroidism [Recovering/Resolving]
  - Dyspnoea [Unknown]
  - Cardiogenic shock [Unknown]
  - Hypercapnia [Unknown]
  - Respiratory failure [Fatal]
  - Graves^ disease [Unknown]
  - Pulmonary congestion [Unknown]
  - Cardiac murmur [Unknown]
  - Cardiac hypertrophy [Unknown]
  - Wheezing [Unknown]
  - Pulmonary artery dilatation [Unknown]
  - Lung disorder [Unknown]

NARRATIVE: CASE EVENT DATE: 20020101
